FAERS Safety Report 11259819 (Version 1)
Quarter: 2015Q3

REPORT INFORMATION
  Report Type: Spontaneous
  Country: TR (occurrence: TR)
  Receive Date: 20150710
  Receipt Date: 20150710
  Transmission Date: 20151125
  Serious: Yes (Other)
  Sender: FDA-Public Use
  Company Number: TR-BRISTOL-MYERS SQUIBB COMPANY-BMS-2015-045031

PATIENT
  Age: 69 Year
  Sex: Female

DRUGS (6)
  1. IRINOTECAN [Concomitant]
     Active Substance: IRINOTECAN
     Indication: COLORECTAL CANCER METASTATIC
     Dosage: UNK
     Route: 065
     Dates: start: 201401
  2. CETUXIMAB [Suspect]
     Active Substance: CETUXIMAB
     Dosage: 35.714 MG/M2, UNK
     Route: 065
  3. OXALIPLATIN. [Suspect]
     Active Substance: OXALIPLATIN
     Indication: COLORECTAL CANCER METASTATIC
     Dosage: UNK
     Route: 065
     Dates: start: 201301, end: 201401
  4. 5-FLUOROURACIL                     /00098801/ [Concomitant]
     Active Substance: FLUOROURACIL
     Indication: COLORECTAL CANCER METASTATIC
     Route: 065
  5. LEUCOVORIN                         /00566701/ [Concomitant]
     Active Substance: LEUCOVORIN
     Indication: COLORECTAL CANCER METASTATIC
     Dosage: UNK
     Route: 065
     Dates: start: 201301
  6. CETUXIMAB [Suspect]
     Active Substance: CETUXIMAB
     Indication: COLORECTAL CANCER METASTATIC
     Dosage: 500 MG/M2, UNK
     Route: 065
     Dates: start: 201301

REACTIONS (4)
  - Trichomegaly [Unknown]
  - Conjunctivitis [Recovered/Resolved]
  - Skin toxicity [Unknown]
  - Neurotoxicity [Unknown]

NARRATIVE: CASE EVENT DATE: 201304
